FAERS Safety Report 6963170-7 (Version None)
Quarter: 2010Q3

REPORT INFORMATION
  Report Type: 
  Country: None (occurrence: None)
  Receive Date: 20100902
  Receipt Date: 20100826
  Transmission Date: 20110219
  Serious: No
  Sender: FDA-Public Use
  Company Number: US-ROXANE LABORATORIES, INC.-2010-RO-00875RO

PATIENT
  Sex: Female

DRUGS (10)
  1. METHADONE HCL [Suspect]
     Indication: PAIN
     Dosage: 30 MG
     Route: 048
     Dates: start: 20100716
  2. METHADONE HCL [Concomitant]
     Dosage: 30 MG
     Route: 048
  3. LYRICA [Concomitant]
  4. POTASSIUM [Concomitant]
  5. SYNTHROID [Concomitant]
  6. LEXAPRO [Concomitant]
  7. EFFEXOR [Concomitant]
  8. ENBREL [Concomitant]
  9. HYDROCHLOROTHIAZIDE [Concomitant]
     Indication: HYPERTENSION
  10. NAPROXEN [Concomitant]
     Dosage: 1000 MG
     Route: 048

REACTIONS (4)
  - DECREASED APPETITE [None]
  - DRUG INEFFECTIVE [None]
  - DYSPEPSIA [None]
  - NAUSEA [None]
